FAERS Safety Report 4900269-0 (Version None)
Quarter: 2006Q1

REPORT INFORMATION
  Report Type: 
  Country: None (occurrence: None)
  Receive Date: 20060203
  Receipt Date: 20050131
  Transmission Date: 20060701
  Serious: Yes (Life-Threatening, Hospitalization)
  Sender: FDA-Public Use
  Company Number: US-ROCHE-394217

PATIENT
  Age: 72 Year
  Sex: Female
  Weight: 67.1 kg

DRUGS (1)
  1. ROCEPHIN [Suspect]
     Indication: PNEUMONIA
     Route: 030
     Dates: start: 20050124, end: 20050124

REACTIONS (4)
  - ANAPHYLACTIC REACTION [None]
  - FALL [None]
  - LOSS OF CONSCIOUSNESS [None]
  - RESPIRATORY ARREST [None]
